FAERS Safety Report 13693777 (Version 4)
Quarter: 2018Q2

REPORT INFORMATION
  Report Type: Report from Study
  Country: ES (occurrence: ES)
  Receive Date: 20170627
  Receipt Date: 20180411
  Transmission Date: 20180711
  Serious: Yes (Hospitalization)
  Sender: FDA-Public Use
  Company Number: PHHO2017ES009542

PATIENT
  Age: 33 Year
  Sex: Female

DRUGS (3)
  1. SALBUTAMOL [Concomitant]
     Active Substance: ALBUTEROL
     Indication: ASTHMA
     Dosage: PRN
     Route: 065
     Dates: start: 2008
  2. AIN457 [Suspect]
     Active Substance: SECUKINUMAB
     Indication: PSORIASIS
     Dosage: 300 MG, UNK (150 MG/ML X2 PFS)
     Route: 058
     Dates: start: 20160823
  3. BUDESONIDE. [Concomitant]
     Active Substance: BUDESONIDE
     Indication: LARYNGITIS
     Dosage: 200 UG, Q8H
     Route: 055
     Dates: start: 20160401, end: 201604

REACTIONS (1)
  - Vocal cord leukoplakia [Recovered/Resolved]

NARRATIVE: CASE EVENT DATE: 20170418
